FAERS Safety Report 16362760 (Version 1)
Quarter: 2019Q2

REPORT INFORMATION
  Report Type: Spontaneous
  Country: US (occurrence: US)
  Receive Date: 20190422
  Receipt Date: 20190422
  Transmission Date: 20190711
  Serious: No
  Sender: FDA-Public Use
  Company Number: None

PATIENT
  Sex: Male

DRUGS (1)
  1. OCALIVA [Suspect]
     Active Substance: OBETICHOLIC ACID
     Indication: PRIMARY BILIARY CHOLANGITIS
     Dosage: ?          OTHER FREQUENCY:ONCEADAYFOR3MONTHS;?
     Route: 048
     Dates: start: 20190402

REACTIONS (3)
  - Oropharyngeal pain [None]
  - Fatigue [None]
  - Rash pruritic [None]

NARRATIVE: CASE EVENT DATE: 2019
